FAERS Safety Report 9716922 (Version 2)
Quarter: 2013Q4

REPORT INFORMATION
  Report Type: Spontaneous
  Country: US (occurrence: US)
  Receive Date: 20131127
  Receipt Date: 20131127
  Transmission Date: 20140711
  Serious: No
  Sender: FDA-Public Use
  Company Number: US-GILEAD-2009-0019899

PATIENT
  Age: 79 Year
  Sex: Female
  Weight: 80.74 kg

DRUGS (9)
  1. LETAIRIS [Suspect]
     Indication: PULMONARY ARTERIAL HYPERTENSION
     Route: 048
     Dates: start: 20080702
  2. DILTIAZEM [Concomitant]
  3. COUMADIN [Concomitant]
  4. ASPIRIN [Concomitant]
  5. SOTALOL [Concomitant]
  6. LASIX [Concomitant]
     Route: 048
  7. LEXAPRO [Concomitant]
     Route: 048
  8. PROTONIX [Concomitant]
     Route: 048
  9. SYNTHROID [Concomitant]
     Route: 048

REACTIONS (1)
  - Liver function test abnormal [Recovered/Resolved]
